FAERS Safety Report 8820586 (Version 1)
Quarter: 2012Q4

REPORT INFORMATION
  Report Type: 
  Country: DE (occurrence: DE)
  Receive Date: 20121002
  Receipt Date: 20121002
  Transmission Date: 20130627
  Serious: Yes (Hospitalization)
  Sender: FDA-Public Use
  Company Number: DE-PFIZER INC-2012237614

PATIENT
  Age: 65 Year
  Sex: Male
  Weight: 168 kg

DRUGS (10)
  1. GENOTROPIN [Suspect]
     Dosage: 0.3 mg, 1x/day, 7inj/wk
     Route: 058
     Dates: start: 20071126
  2. CALCIUM CARBONATE [Concomitant]
     Indication: CALCIUM METABOLISM DISORDER
     Dosage: UNK
     Dates: start: 20061211
  3. METFORMIN [Concomitant]
     Indication: DIABETES MELLITUS
     Dosage: UNK
     Dates: start: 20061211
  4. HYDROCORTISONE [Concomitant]
     Indication: BLOOD CORTICOTROPHIN DECREASED
     Dosage: UNK
     Dates: start: 20061211
  5. TESTOSTERONE [Concomitant]
     Indication: BLOOD LUTEINISING HORMONE DECREASED
     Dosage: UNK
     Dates: start: 20061211
  6. TESTOSTERONE [Concomitant]
     Indication: BLOOD FOLLICLE STIMULATING HORMONE DECREASED
  7. TESTOSTERONE [Concomitant]
     Indication: HYPOGONADISM MALE
  8. COLECALCIFEROL [Concomitant]
     Indication: BONE DISORDER
     Dosage: UNK
     Dates: start: 20061211
  9. EUTHYROX [Concomitant]
     Indication: BLOOD THYROID STIMULATING HORMONE DECREASED
     Dosage: UNK
     Dates: start: 20061211
  10. EUTHYROX [Concomitant]
     Indication: PRIMARY HYPOTHYROIDISM

REACTIONS (1)
  - Anal fistula [Unknown]
